FAERS Safety Report 4820642-9 (Version None)
Quarter: 2005Q4

REPORT INFORMATION
  Report Type: 
  Country: None (occurrence: None)
  Receive Date: 20051104
  Receipt Date: 20050913
  Transmission Date: 20060501
  Serious: Yes (Other)
  Sender: FDA-Public Use
  Company Number: DE-GLAXOSMITHKLINE-D0047515A

PATIENT
  Age: 50 Year
  Sex: Male
  Weight: 90 kg

DRUGS (3)
  1. IMIGRAN [Suspect]
     Indication: MIGRAINE
     Dosage: 1TAB PER DAY
     Route: 048
  2. ASCOTOP [Suspect]
     Indication: MIGRAINE
     Dosage: 5MG THREE TIMES PER WEEK
     Route: 065
     Dates: start: 20040701, end: 20050701
  3. IBUPROFEN [Concomitant]
     Indication: MIGRAINE
     Route: 065

REACTIONS (12)
  - BLOOD CHOLESTEROL INCREASED [None]
  - BLOOD TRIGLYCERIDES INCREASED [None]
  - BLUE TOE SYNDROME [None]
  - CYANOSIS [None]
  - DRUG ABUSER [None]
  - ERGOT POISONING [None]
  - HEADACHE [None]
  - HYPOPERFUSION [None]
  - PERIPHERAL ARTERIAL OCCLUSIVE DISEASE [None]
  - PERIPHERAL ISCHAEMIA [None]
  - POOR PERIPHERAL CIRCULATION [None]
  - PULSE PRESSURE DECREASED [None]
